FAERS Safety Report 4864886-9 (Version None)
Quarter: 2005Q4

REPORT INFORMATION
  Report Type: 
  Country: None (occurrence: None)
  Receive Date: 20051201
  Receipt Date: 20050820
  Transmission Date: 20060501
  Serious: No
  Sender: FDA-Public Use
  Company Number: 2005PV001110

PATIENT
  Age: 62 Year
  Sex: Female

DRUGS (2)
  1. BYETTA [Suspect]
     Indication: DIABETES MELLITUS NON-INSULIN-DEPENDENT
     Dosage: 5 MCG; BID; SC
     Route: 058
     Dates: start: 20050813
  2. ANTI-ASTHMATICS [Concomitant]

REACTIONS (4)
  - ASTHMA [None]
  - CONDITION AGGRAVATED [None]
  - INJECTION SITE BRUISING [None]
  - INJECTION SITE PAIN [None]
